FAERS Safety Report 9146838 (Version 1)
Quarter: 2013Q1

REPORT INFORMATION
  Report Type: Spontaneous
  Country: US (occurrence: US)
  Receive Date: 20130307
  Receipt Date: 20130307
  Transmission Date: 20140127
  Serious: Yes (Hospitalization)
  Sender: FDA-Public Use
  Company Number: US-BAYER-2013-025802

PATIENT
  Age: 52 Year
  Sex: Male

DRUGS (2)
  1. NEXAVAR [Suspect]
     Indication: HEPATIC CANCER METASTATIC
     Dosage: UNK
     Dates: start: 2007, end: 2007
  2. NEXAVAR [Suspect]
     Indication: HEPATIC CANCER METASTATIC
     Dosage: 400 MG, BID
     Dates: start: 2008

REACTIONS (3)
  - Pyrexia [Recovered/Resolved]
  - Palmar-plantar erythrodysaesthesia syndrome [None]
  - Diarrhoea [None]
